FAERS Safety Report 9210213 (Version 2)
Quarter: 2013Q3

REPORT INFORMATION
  Report Type: Report from Study
  Country: JP (occurrence: JP)
  Receive Date: 20130404
  Receipt Date: 20130722
  Transmission Date: 20140515
  Serious: Yes (Death)
  Sender: FDA-Public Use
  Company Number: JP-ROCHE-1209318

PATIENT
  Sex: Male
  Weight: 52 kg

DRUGS (7)
  1. METHOXY POLYETHYLENE GLYCOL-EPOETIN BETA [Suspect]
     Indication: NEPHROGENIC ANAEMIA
     Route: 058
     Dates: start: 20120223, end: 20120712
  2. CALTAN [Concomitant]
     Indication: GLOMERULONEPHRITIS CHRONIC
     Route: 048
  3. THYRADIN-S [Concomitant]
     Indication: HYPOTHYROIDISM
     Route: 048
  4. NORVASC [Concomitant]
     Indication: HYPERTENSION
     Route: 048
  5. FERO-GRADUMET [Concomitant]
     Route: 048
  6. ARGAMATE [Concomitant]
     Indication: GLOMERULONEPHRITIS CHRONIC
     Route: 048
  7. CLARITH [Concomitant]
     Dosage: EVERY OTHER DAY
     Route: 048

REACTIONS (1)
  - Death [Fatal]
